FAERS Safety Report 7549910-7 (Version None)
Quarter: 2011Q2

REPORT INFORMATION
  Report Type: 
  Country: None (occurrence: None)
  Receive Date: 20110615
  Receipt Date: 20110609
  Transmission Date: 20111010
  Serious: Yes (Other)
  Sender: FDA-Public Use
  Company Number: US-PFIZER INC-2011114201

PATIENT
  Sex: Female
  Weight: 81.633 kg

DRUGS (13)
  1. LIPITOR [Suspect]
     Indication: BLOOD CHOLESTEROL INCREASED
     Dosage: 40 MG, 1X/DAY
     Route: 048
  2. AMBIEN [Concomitant]
     Indication: SLEEP DISORDER
     Dosage: 10 MG, 1X/DAY
     Route: 048
     Dates: start: 20050101
  3. MAXZIDE [Concomitant]
     Indication: BLOOD PRESSURE ABNORMAL
     Dosage: HALF A TABLET OF 75MG, 1X/DAY
     Route: 048
     Dates: start: 20040101
  4. FIBERCON [Concomitant]
     Dosage: UNK
  5. TRICOR [Concomitant]
     Indication: BLOOD TRIGLYCERIDES ABNORMAL
     Dosage: 145 MG, 1X/DAY
     Route: 048
     Dates: start: 20060101
  6. MIRAPEX [Concomitant]
     Indication: RESTLESS LEGS SYNDROME
     Dosage: 0.5 MG, 1X/DAY
     Route: 048
     Dates: start: 20080101
  7. VITAMIN D [Concomitant]
     Dosage: UNK
  8. ULTRAM [Concomitant]
     Indication: ARTHRALGIA
     Dosage: 50 MG, 4X/DAY
     Route: 048
  9. LIPITOR [Suspect]
     Dosage: 80 MG, 1X/DAY
     Route: 048
     Dates: start: 20110503
  10. PREVACID [Concomitant]
     Indication: HYPERCHLORHYDRIA
     Dosage: 30 MG, 2X/DAY
  11. VITAMIN E [Concomitant]
     Dosage: UNK
  12. CELEXA [Concomitant]
     Indication: DEPRESSION
     Dosage: ONE AND HALF TABLET OF 20MG, 1X/DAY
     Route: 048
     Dates: start: 20100101
  13. CELEXA [Concomitant]
     Indication: ANXIETY

REACTIONS (3)
  - MYALGIA [None]
  - PRURITUS [None]
  - MUSCLE SPASMS [None]
